FAERS Safety Report 25155980 (Version 1)
Quarter: 2025Q2

REPORT INFORMATION
  Report Type: Spontaneous
  Country: BE (occurrence: BE)
  Receive Date: 20250403
  Receipt Date: 20250403
  Transmission Date: 20250716
  Serious: Yes (Disabling)
  Sender: ASCEND THERAPEUTICS US, LLC
  Company Number: BE-Ascend Therapeutics US, LLC-2174213

PATIENT
  Age: 57 Year
  Sex: Female

DRUGS (3)
  1. ESTROGEL [Suspect]
     Active Substance: ESTRADIOL
     Indication: Hormone replacement therapy
     Dates: start: 20241019
  2. ESTRADIOL [Suspect]
     Active Substance: ESTRADIOL
     Dates: start: 20241019
  3. PROGESTERONE [Suspect]
     Active Substance: PROGESTERONE
     Dates: start: 20241019

REACTIONS (4)
  - Hypertonic bladder [Not Recovered/Not Resolved]
  - Micturition urgency [Not Recovered/Not Resolved]
  - Nocturia [Not Recovered/Not Resolved]
  - Pollakiuria [Not Recovered/Not Resolved]

NARRATIVE: CASE EVENT DATE: 20241106
